FAERS Safety Report 14015968 (Version 1)
Quarter: 2017Q3

REPORT INFORMATION
  Report Type: Spontaneous
  Country: NO (occurrence: NO)
  Receive Date: 20170927
  Receipt Date: 20170927
  Transmission Date: 20171128
  Serious: Yes (Hospitalization, Other)
  Sender: FDA-Public Use
  Company Number: NO-TEVA-333012ISR

PATIENT
  Age: 14 Year
  Sex: Male
  Weight: 75 kg

DRUGS (7)
  1. PREDNISOLONE SODIUM SUCCINATE [Concomitant]
     Active Substance: PREDNISOLONE SODIUM SUCCINATE
     Indication: MEDULLOBLASTOMA RECURRENT
     Route: 065
  2. DEPOCYTE [Suspect]
     Active Substance: CYTARABINE
     Dosage: 50MG ON ALTERNATE WEEKS, GRADUALLY INCREASED TO EVERY OTHER MONTH; 3-MONTH BREAK AFTER 7TH COURSE
     Route: 037
  3. ETOPOSIDE. [Suspect]
     Active Substance: ETOPOSIDE
     Dosage: 25MG EVERY OTHER DAY FOR THE LAST 8 MONTHS; CUMULATIVE DOSE OF 11.5 G/M2 OVER 31 MONTHS
     Route: 048
  4. THALIDOMIDE [Suspect]
     Active Substance: THALIDOMIDE
     Indication: MEDULLOBLASTOMA
     Dosage: MAXIMAL DOSE 200MG DAILY (3 MG/KG)
     Route: 048
  5. ETOPOSIDE. [Suspect]
     Active Substance: ETOPOSIDE
     Indication: MEDULLOBLASTOMA
     Dosage: MAXIMAL DOSE 100MG DAILY (50 MG/M2); CUMULATIVE DOSE OF 11.5 G/M2 OVER 31 MONTHS
     Route: 048
  6. CELECOXIB. [Suspect]
     Active Substance: CELECOXIB
     Indication: MEDULLOBLASTOMA
     Dosage: MAXIMAL DOSE 200MG DAILY (3 MG/KG)
     Route: 048
  7. DEXAMETHASONE. [Concomitant]
     Active Substance: DEXAMETHASONE
     Indication: ARACHNOIDITIS
     Dosage: 4MG X 2 FOR 6 DAYS FROM THE SECOND CYTARABINE COURSE ONWARD
     Route: 048

REACTIONS (11)
  - Arachnoiditis [Recovering/Resolving]
  - Decreased appetite [Recovered/Resolved]
  - Pyrexia [Recovered/Resolved]
  - Deafness [Recovering/Resolving]
  - Sinusitis [Recovered/Resolved]
  - Listless [Recovered/Resolved]
  - Fall [Unknown]
  - Neutropenia [Recovered/Resolved]
  - C-reactive protein increased [Recovered/Resolved]
  - Mucosal inflammation [Recovered/Resolved]
  - Fatigue [Recovered/Resolved]
